FAERS Safety Report 7720832-1 (Version None)
Quarter: 2011Q3

REPORT INFORMATION
  Report Type: 
  Country: None (occurrence: None)
  Receive Date: 20110831
  Receipt Date: 20110822
  Transmission Date: 20111222
  Serious: Yes (Life-Threatening, Hospitalization)
  Sender: FDA-Public Use
  Company Number: NO-BRISTOL-MYERS SQUIBB COMPANY-15794118

PATIENT
  Age: 21 Year
  Sex: Male

DRUGS (4)
  1. IFOSFAMIDE [Suspect]
  2. CISPLATIN [Suspect]
     Indication: BONE SARCOMA
     Route: 042
  3. METHOTREXATE [Suspect]
     Indication: BONE SARCOMA
     Dosage: 1 DF: 12G/M2 2 CYCLES
  4. ADRIAMYCIN PFS [Suspect]
     Indication: BONE SARCOMA

REACTIONS (4)
  - THROMBOCYTOPENIA [None]
  - ENTEROCOLITIS [None]
  - TOXICITY TO VARIOUS AGENTS [None]
  - NEUTROPENIA [None]
